FAERS Safety Report 24227695 (Version 1)
Quarter: 2024Q3

REPORT INFORMATION
  Report Type: Report from Study
  Country: CN (occurrence: CN)
  Receive Date: 20240820
  Receipt Date: 20240820
  Transmission Date: 20241016
  Serious: Yes (Other)
  Sender: ROCHE
  Company Number: CN-ROCHE-10000053588

PATIENT
  Sex: Female

DRUGS (2)
  1. RITUXIMAB [Suspect]
     Active Substance: RITUXIMAB
     Indication: Diffuse large B-cell lymphoma
     Route: 042
     Dates: start: 20230920
  2. POLIVY [Suspect]
     Active Substance: POLATUZUMAB VEDOTIN-PIIQ
     Indication: Diffuse large B-cell lymphoma
     Route: 042
     Dates: start: 20230920

REACTIONS (29)
  - Computerised tomogram abnormal [Unknown]
  - Cerebral atrophy [Unknown]
  - Demyelination [Unknown]
  - Drug ineffective [Unknown]
  - Type 2 diabetes mellitus [Unknown]
  - Cardiac failure [Unknown]
  - Osteoarthritis [Unknown]
  - Arrhythmia [Unknown]
  - Hypertension [Unknown]
  - Pancreatic steatosis [Unknown]
  - Renal cyst [Unknown]
  - Lymphadenopathy [Unknown]
  - Pelvic fluid collection [Unknown]
  - Pulmonary mass [Unknown]
  - Pneumonitis [Unknown]
  - Pleural thickening [Unknown]
  - Thyroid disorder [Unknown]
  - Hepatic cyst [Unknown]
  - Haemangioma of liver [Unknown]
  - Gallbladder disorder [Unknown]
  - Cholestasis [Unknown]
  - Retroperitoneal lymphadenopathy [Unknown]
  - Retroperitoneal lymphadenopathy [Unknown]
  - Ascites [Unknown]
  - Renal cyst [Unknown]
  - Renal disorder [Unknown]
  - Atrial fibrillation [Unknown]
  - Infection [Unknown]
  - Immunodeficiency [Unknown]

NARRATIVE: CASE EVENT DATE: 20240101
